FAERS Safety Report 5705902-1 (Version None)
Quarter: 2008Q2

REPORT INFORMATION
  Report Type: 
  Country: None (occurrence: None)
  Receive Date: 20080415
  Receipt Date: 20080409
  Transmission Date: 20081010
  Serious: Yes (Disabling)
  Sender: FDA-Public Use
  Company Number: BR-ASTRAZENECA-2008UW07276

PATIENT
  Age: 76 Year
  Sex: Female
  Weight: 54 kg

DRUGS (4)
  1. ARIMIDEX [Suspect]
     Indication: BREAST CANCER
     Route: 048
     Dates: start: 20060515
  2. CALTRATE [Concomitant]
     Indication: MINERAL SUPPLEMENTATION
     Route: 048
     Dates: start: 20060515
  3. ATENOLOL [Concomitant]
     Indication: HYPERTENSION
     Route: 048
  4. PANKREOFLAT [Concomitant]
     Indication: DYSPEPSIA
     Route: 048

REACTIONS (4)
  - ANGINA UNSTABLE [None]
  - ASTHENIA [None]
  - HYPOTENSION [None]
  - MYALGIA [None]
